FAERS Safety Report 18639588 (Version 2)
Quarter: 2021Q1

REPORT INFORMATION
  Report Type: Other
  Country: US (occurrence: US)
  Receive Date: 20201220
  Receipt Date: 20210203
  Transmission Date: 20210419
  Serious: Yes (Other)
  Sender: FDA-Public Use
  Company Number: US-STANDARD HOMEOPATHIC COMPANY-2103221

PATIENT
  Age: 36 Year
  Sex: Female

DRUGS (2)
  1. PROZAC [Interacting]
     Active Substance: FLUOXETINE HYDROCHLORIDE
  2. NUX VOMICA 30X [Suspect]
     Active Substance: HOMEOPATHICS
     Indication: INFLUENZA
     Route: 048
     Dates: start: 20201204, end: 20201204

REACTIONS (1)
  - Loss of consciousness [Unknown]

NARRATIVE: CASE EVENT DATE: 20201204
